FAERS Safety Report 9072966 (Version 1)
Quarter: 2013Q1

REPORT INFORMATION
  Report Type: Report from Study
  Country: US (occurrence: US)
  Receive Date: 20130129
  Receipt Date: 20130129
  Transmission Date: 20140127
  Serious: No
  Sender: FDA-Public Use
  Company Number: US-ABBOTT-12P-163-0936437-00

PATIENT
  Sex: Female

DRUGS (8)
  1. HUMIRA 40 MG/0.8 ML PEN [Suspect]
     Indication: RHEUMATOID ARTHRITIS
     Route: 058
     Dates: start: 20090804, end: 201204
  2. METHOTREXATE [Concomitant]
     Indication: RHEUMATOID ARTHRITIS
  3. PREVACID [Concomitant]
     Indication: GASTRIC DISORDER
  4. FOLIC ACID [Concomitant]
     Indication: VITAMIN SUPPLEMENTATION
  5. TRAMADOL [Concomitant]
     Indication: RHEUMATOID ARTHRITIS
  6. CITALOPRAM [Concomitant]
     Indication: DEPRESSION
  7. SIMVASTATIN [Concomitant]
     Indication: HYPERLIPIDAEMIA
  8. UNKNOWN SLEEP AID [Concomitant]
     Indication: INSOMNIA

REACTIONS (6)
  - Asthenia [Not Recovered/Not Resolved]
  - Depression [Not Recovered/Not Resolved]
  - Pain [Not Recovered/Not Resolved]
  - Back pain [Not Recovered/Not Resolved]
  - Back pain [Not Recovered/Not Resolved]
  - Therapy cessation [Not Recovered/Not Resolved]
